FAERS Safety Report 6840353-8 (Version None)
Quarter: 2010Q3

REPORT INFORMATION
  Report Type: 
  Country: None (occurrence: None)
  Receive Date: 20100714
  Receipt Date: 20100705
  Transmission Date: 20110219
  Serious: Yes (Hospitalization, Other)
  Sender: FDA-Public Use
  Company Number: US-PFIZER INC-2010083926

PATIENT
  Age: 89 Year
  Sex: Male

DRUGS (4)
  1. AZITHROMYCIN [Suspect]
  2. METRONIDAZOLE [Suspect]
  3. PIPERACILLIN AND TAZOBACTAM [Suspect]
  4. VANCOMYCIN [Suspect]

REACTIONS (3)
  - ACUTE GENERALISED EXANTHEMATOUS PUSTULOSIS [None]
  - BLISTER [None]
  - OEDEMA PERIPHERAL [None]
